FAERS Safety Report 9670787 (Version 2)
Quarter: 2013Q4

REPORT INFORMATION
  Report Type: Spontaneous
  Country: CN (occurrence: CN)
  Receive Date: 20131106
  Receipt Date: 20131106
  Transmission Date: 20140711
  Serious: Yes (Other)
  Sender: FDA-Public Use
  Company Number: CN-ROCHE-1291868

PATIENT
  Sex: 0

DRUGS (2)
  1. PEGASYS [Suspect]
     Indication: PRODUCT USED FOR UNKNOWN INDICATION
     Dosage: TEMPORARILY INTERRUPTED
     Route: 058
  2. PEGASYS [Suspect]
     Dosage: THERAPY RESTARTED AND THEN DISCONTINUED
     Route: 058

REACTIONS (1)
  - White blood cell count decreased [Not Recovered/Not Resolved]
